FAERS Safety Report 11048266 (Version 2)
Quarter: 2015Q2

REPORT INFORMATION
  Report Type: Spontaneous
  Country: JP (occurrence: JP)
  Receive Date: 20150420
  Receipt Date: 20150501
  Transmission Date: 20150821
  Serious: Yes (Death, Other)
  Sender: FDA-Public Use
  Company Number: JP-BAXTER-2015BAX020140

PATIENT
  Age: 88 Year
  Sex: Male
  Weight: 50 kg

DRUGS (2)
  1. EXTRANEAL [Suspect]
     Active Substance: CALCIUM CHLORIDE\ICODEXTRIN\MAGNESIUM CHLORIDE\SODIUM CHLORIDE\SODIUM LACTATE
     Indication: IGA NEPHROPATHY
     Route: 033
     Dates: start: 20080207, end: 20150412
  2. DIANEAL [Suspect]
     Active Substance: CALCIUM CHLORIDE\DEXTROSE\MAGNESIUM CHLORIDE\SODIUM CHLORIDE\SODIUM LACTATE
     Indication: IGA NEPHROPATHY
     Route: 033
     Dates: start: 20080207, end: 20150412

REACTIONS (2)
  - Marasmus [Fatal]
  - Cardiac failure [Unknown]
